FAERS Safety Report 7232825-1 (Version None)
Quarter: 2011Q1

REPORT INFORMATION
  Report Type: 
  Country: None (occurrence: None)
  Receive Date: 20110106
  Receipt Date: 20101222
  Transmission Date: 20110831
  Serious: Yes (Hospitalization)
  Sender: FDA-Public Use
  Company Number: 024140

PATIENT
  Sex: Male
  Weight: 105 kg

DRUGS (17)
  1. ASPIRIN [Concomitant]
  2. MOVICOL /01053601/ [Concomitant]
  3. NEUPRO [Suspect]
     Indication: PARKINSON'S DISEASE
     Dosage: 2 MG QD, 4 MG QD, 6 MG QD, 8 MG QD, 6 MG QD
     Dates: start: 20090725, end: 20090827
  4. NEUPRO [Suspect]
     Indication: PARKINSON'S DISEASE
     Dosage: 2 MG QD, 4 MG QD, 6 MG QD, 8 MG QD, 6 MG QD
     Dates: start: 20090711, end: 20090717
  5. NEUPRO [Suspect]
     Indication: PARKINSON'S DISEASE
     Dosage: 2 MG QD, 4 MG QD, 6 MG QD, 8 MG QD, 6 MG QD
     Dates: start: 20090828, end: 20091027
  6. NEUPRO [Suspect]
     Indication: PARKINSON'S DISEASE
     Dosage: 2 MG QD, 4 MG QD, 6 MG QD, 8 MG QD, 6 MG QD
     Dates: start: 20090718, end: 20090724
  7. NEUPRO [Suspect]
     Indication: PARKINSON'S DISEASE
     Dosage: 2 MG QD, 4 MG QD, 6 MG QD, 8 MG QD, 6 MG QD
     Dates: start: 20091028, end: 20100223
  8. UNKNOWN [Concomitant]
  9. AZILECT [Concomitant]
  10. BLOPRESS [Concomitant]
  11. XIPAMID [Concomitant]
  12. PANTOZOL /01263202/ [Concomitant]
  13. IBUPROFEN [Concomitant]
  14. NITREDNIPIN [Concomitant]
  15. MAGNESIOCARD .00669702/ [Concomitant]
  16. MADOPAR LT [Concomitant]
  17. LEVOCARB [Concomitant]

REACTIONS (2)
  - PARKINSONISM [None]
  - CONDITION AGGRAVATED [None]
